FAERS Safety Report 6530840-4 (Version None)
Quarter: 2010Q1

REPORT INFORMATION
  Report Type: 
  Country: None (occurrence: None)
  Receive Date: 20100108
  Receipt Date: 20090506
  Transmission Date: 20100710
  Serious: No
  Sender: FDA-Public Use
  Company Number: A0776170A

PATIENT
  Age: 87 Year
  Sex: Female

DRUGS (3)
  1. LOVAZA [Suspect]
     Dosage: 1CAP THREE TIMES PER DAY
     Route: 048
     Dates: start: 20081001
  2. SYNTHROID [Concomitant]
  3. DIAZIDE [Concomitant]

REACTIONS (3)
  - GASTROOESOPHAGEAL REFLUX DISEASE [None]
  - PRODUCT ODOUR ABNORMAL [None]
  - PRODUCT QUALITY ISSUE [None]
